FAERS Safety Report 17419114 (Version 1)
Quarter: 2020Q1

REPORT INFORMATION
  Report Type: Spontaneous
  Country: US (occurrence: US)
  Receive Date: 20200131
  Receipt Date: 20200131
  Transmission Date: 20200409
  Serious: Yes (Hospitalization)
  Sender: FDA-Public Use
  Company Number: None

PATIENT
  Age: 87 Year
  Sex: Female

DRUGS (1)
  1. PROLIA [Suspect]
     Active Substance: DENOSUMAB
     Dosage: ?          OTHER FREQUENCY:Q6 MONTHS;?
     Route: 058
     Dates: start: 20180929

REACTIONS (2)
  - Cellulitis [None]
  - Peripheral swelling [None]

NARRATIVE: CASE EVENT DATE: 20200122
